FAERS Safety Report 9287271 (Version 2)
Quarter: 2013Q2

REPORT INFORMATION
  Report Type: Spontaneous
  Country: US (occurrence: US)
  Receive Date: 20130513
  Receipt Date: 20130521
  Transmission Date: 20140414
  Serious: Yes (Hospitalization)
  Sender: FDA-Public Use
  Company Number: US-B.I. PHARMACEUTICALS,INC./RIDGEFIELD-2013-BI-12896BP

PATIENT
  Age: 86 Year
  Sex: Female

DRUGS (12)
  1. PRADAXA [Suspect]
     Indication: CEREBROVASCULAR ACCIDENT PROPHYLAXIS
     Dosage: 300 MG
     Dates: start: 20130403
  2. PRADAXA [Suspect]
     Indication: ATRIAL FIBRILLATION
  3. WARFARIN [Concomitant]
  4. SYNTHYROID [Concomitant]
  5. ALBUTEROL [Concomitant]
  6. SIMVASTATIN [Concomitant]
  7. CITALOPRAM [Concomitant]
  8. COLACE [Concomitant]
  9. NEXIUM [Concomitant]
  10. RANITIDINE [Concomitant]
  11. VITAMIN D [Concomitant]
  12. METAMUCIL [Concomitant]

REACTIONS (1)
  - Lower gastrointestinal haemorrhage [Recovered/Resolved]
